FAERS Safety Report 9669805 (Version 3)
Quarter: 2015Q2

REPORT INFORMATION
  Report Type: Spontaneous
  Country: US (occurrence: US)
  Receive Date: 20131105
  Receipt Date: 20150526
  Transmission Date: 20150821
  Serious: Yes (Congenital Anomaly, Other)
  Sender: FDA-Public Use
  Company Number: US-ELI_LILLY_AND_COMPANY-US201310008485

PATIENT

DRUGS (1)
  1. PROZAC [Suspect]
     Active Substance: FLUOXETINE HYDROCHLORIDE
     Indication: PRODUCT USED FOR UNKNOWN INDICATION
     Dosage: 1 DF, UNKNOWN
     Route: 064

REACTIONS (7)
  - Amniotic band syndrome [Recovered/Resolved with Sequelae]
  - Oligohydramnios [Recovered/Resolved]
  - Foetal exposure during pregnancy [Recovered/Resolved]
  - Congenital syphilis [Unknown]
  - Cellulitis [Unknown]
  - Limb reduction defect [Recovered/Resolved with Sequelae]
  - Small for dates baby [Recovered/Resolved]
